FAERS Safety Report 17497570 (Version 1)
Quarter: 2020Q1

REPORT INFORMATION
  Report Type: Spontaneous
  Country: FR (occurrence: FR)
  Receive Date: 20200304
  Receipt Date: 20200304
  Transmission Date: 20200409
  Serious: Yes (Hospitalization)
  Sender: FDA-Public Use
  Company Number: FR-MYLANLABS-2020M1022669

PATIENT
  Age: 25 Year
  Sex: Female
  Weight: 92 kg

DRUGS (10)
  1. SUFENTANIL MYLAN [Suspect]
     Active Substance: SUFENTANIL
     Indication: ANAESTHESIA
     Dosage: 10 MICROGRAM
     Route: 042
     Dates: start: 20200103, end: 20200103
  2. DEXAMETHASONE MYLAN [Suspect]
     Active Substance: DEXAMETHASONE
     Indication: PRODUCT USED FOR UNKNOWN INDICATION
     Dosage: 8 MILLIGRAM
     Route: 042
     Dates: start: 20200103, end: 20200103
  3. MIDAZOLAM MYLAN [Suspect]
     Active Substance: MIDAZOLAM HYDROCHLORIDE
     Indication: ANAESTHESIA
     Dosage: 2 MILLIGRAM
     Route: 042
     Dates: start: 20200103, end: 20200103
  4. SUXAMETHONIUM                      /00057702/ [Suspect]
     Active Substance: SUCCINYLCHOLINE
     Indication: ANAESTHESIA
     Dosage: 70 MILLIGRAM
     Route: 042
     Dates: start: 20200103, end: 20200103
  5. MORPHINE [Suspect]
     Active Substance: MORPHINE
     Indication: DRUG TITRATION
     Dosage: 8 MILLIGRAM
     Route: 042
     Dates: start: 20200103, end: 20200103
  6. SYNTOCINON [Suspect]
     Active Substance: OXYTOCIN
     Indication: THIRD STAGE POSTPARTUM HAEMORRHAGE
     Dosage: 10 INTERNATIONAL UNIT
     Route: 042
     Dates: start: 20200103, end: 20200103
  7. KETAMINE RENAUDIN [Suspect]
     Active Substance: KETAMINE
     Indication: ANAESTHESIA
     Dosage: 15 MILLIGRAM
     Route: 042
     Dates: start: 20200103, end: 20200103
  8. NALADOR [Suspect]
     Active Substance: SULPROSTONE
     Indication: THIRD STAGE POSTPARTUM HAEMORRHAGE
     Dosage: 500 MICROGRAM
     Route: 042
     Dates: start: 20200103, end: 20200103
  9. CEFAZOLINE MYLAN [Suspect]
     Active Substance: CEFAZOLIN SODIUM
     Indication: PRODUCT USED FOR UNKNOWN INDICATION
     Dosage: 2 GRAM
     Route: 042
     Dates: start: 20200103, end: 20200103
  10. PROPOFOL. [Suspect]
     Active Substance: PROPOFOL
     Indication: ANAESTHESIA
     Dosage: 400 MILLIGRAM
     Route: 042
     Dates: start: 20200103, end: 20200103

REACTIONS (4)
  - Eyelid oedema [Recovered/Resolved]
  - Face oedema [Recovered/Resolved]
  - Rash erythematous [Recovered/Resolved]
  - Oedema peripheral [Recovered/Resolved]

NARRATIVE: CASE EVENT DATE: 20200103
